FAERS Safety Report 9712960 (Version 1)
Quarter: 2013Q4

REPORT INFORMATION
  Report Type: Spontaneous
  Country: US (occurrence: None)
  Receive Date: 20131125
  Receipt Date: 20131125
  Transmission Date: 20140711
  Serious: Yes (Hospitalization)
  Sender: FDA-Public Use
  Company Number: None

PATIENT
  Age: 31 Year
  Sex: Male
  Weight: 78.02 kg

DRUGS (3)
  1. CHLORPROMAZINE HCL [Suspect]
     Indication: AGITATION
     Route: 030
     Dates: start: 20131106, end: 20131107
  2. CHLORPROMAZINE HCL [Suspect]
     Indication: AGGRESSION
     Route: 030
     Dates: start: 20131106, end: 20131107
  3. CHLORPROMAZINE HCL [Suspect]
     Indication: BIPOLAR DISORDER
     Route: 030
     Dates: start: 20131106, end: 20131107

REACTIONS (1)
  - Painful erection [None]
